FAERS Safety Report 23844722 (Version 1)
Quarter: 2024Q2

REPORT INFORMATION
  Report Type: Spontaneous
  Country: IT (occurrence: IT)
  Receive Date: 20240511
  Receipt Date: 20240511
  Transmission Date: 20240717
  Serious: Yes (Other)
  Sender: FDA-Public Use
  Company Number: IT-SA-SAC20240423000052

PATIENT
  Age: 51 Year
  Sex: Male
  Weight: 80 kg

DRUGS (4)
  1. DUPIXENT [Suspect]
     Active Substance: DUPILUMAB
     Indication: Chronic rhinosinusitis with nasal polyps
     Dosage: UNK
     Route: 058
     Dates: start: 202106, end: 202111
  2. DUPIXENT [Suspect]
     Active Substance: DUPILUMAB
     Dosage: UNK
     Dates: start: 202212
  3. AMOXICILLIN\CLAVULANIC ACID [Concomitant]
     Active Substance: AMOXICILLIN\CLAVULANIC ACID
     Dosage: 1 G, TID
  4. TEDIZOLID [Concomitant]
     Active Substance: TEDIZOLID
     Dosage: 200 MG, QD

REACTIONS (20)
  - Iridocyclitis [Not Recovered/Not Resolved]
  - Nodular vasculitis [Not Recovered/Not Resolved]
  - Exophthalmos [Not Recovered/Not Resolved]
  - Uveitis [Not Recovered/Not Resolved]
  - Serous retinal detachment [Not Recovered/Not Resolved]
  - Retinal haemorrhage [Not Recovered/Not Resolved]
  - Visual impairment [Not Recovered/Not Resolved]
  - Eye naevus [Not Recovered/Not Resolved]
  - Toxoplasma serology positive [Not Recovered/Not Resolved]
  - Conjunctival hyperaemia [Not Recovered/Not Resolved]
  - Eye discharge [Not Recovered/Not Resolved]
  - Pulmonary mass [Not Recovered/Not Resolved]
  - Cytomegalovirus infection [Not Recovered/Not Resolved]
  - Epstein-Barr virus infection [Not Recovered/Not Resolved]
  - Vitreous disorder [Not Recovered/Not Resolved]
  - Nodule [Not Recovered/Not Resolved]
  - Muscle strain [Not Recovered/Not Resolved]
  - Symptom recurrence [Unknown]
  - Herpes simplex [Not Recovered/Not Resolved]
  - Keratitis [Unknown]

NARRATIVE: CASE EVENT DATE: 20231125
